FAERS Safety Report 10183337 (Version 1)
Quarter: 2014Q2

REPORT INFORMATION
  Report Type: Spontaneous
  Country: IT (occurrence: IT)
  Receive Date: 20140520
  Receipt Date: 20140520
  Transmission Date: 20141212
  Serious: Yes (Hospitalization)
  Sender: FDA-Public Use
  Company Number: IT-PFIZER INC-2014133219

PATIENT
  Age: 82 Year
  Sex: Female

DRUGS (6)
  1. TRIATEC [Suspect]
     Indication: HYPERTENSION
     Dosage: 1 DF, DAILY
     Route: 048
     Dates: start: 20140101, end: 20140423
  2. LASIX [Suspect]
     Indication: HYPERTENSION
     Dosage: 1 DF (25 MG STRENGTH TABLET), DAILY
     Route: 048
     Dates: start: 20140101, end: 20140423
  3. TILDIEM [Suspect]
     Indication: HYPERTENSION
     Dosage: 3 DF, DAILY
     Route: 048
     Dates: start: 20140101, end: 20140423
  4. CALCIUM [Concomitant]
     Dosage: UNK
  5. MEDROL [Concomitant]
  6. COUMADIN [Concomitant]

REACTIONS (6)
  - Dyspnoea [Unknown]
  - Hyperhidrosis [Unknown]
  - Presyncope [Unknown]
  - Astringent therapy [Unknown]
  - Constipation [Unknown]
  - Hypotension [Unknown]
